FAERS Safety Report 12648570 (Version 2)
Quarter: 2016Q4

REPORT INFORMATION
  Report Type: Spontaneous
  Country: PE (occurrence: PE)
  Receive Date: 20160812
  Receipt Date: 20161212
  Transmission Date: 20170207
  Serious: Yes (Death, Other)
  Sender: FDA-Public Use
  Company Number: PE-PFIZER INC-2016379275

PATIENT
  Age: 81 Year
  Sex: Female

DRUGS (1)
  1. ZOLOFT [Suspect]
     Active Substance: SERTRALINE HYDROCHLORIDE
     Dosage: UNK

REACTIONS (3)
  - Myocardial infarction [Fatal]
  - Mental disorder [Unknown]
  - Parkinson^s disease [Unknown]

NARRATIVE: CASE EVENT DATE: 201611
